FAERS Safety Report 17873439 (Version 1)
Quarter: 2020Q2

REPORT INFORMATION
  Report Type: Spontaneous
  Country: FR (occurrence: FR)
  Receive Date: 20200609
  Receipt Date: 20200609
  Transmission Date: 20200714
  Serious: Yes (Hospitalization, Other)
  Sender: FDA-Public Use
  Company Number: FR-AUROBINDO-AUR-APL-2020-027638

PATIENT
  Age: 63 Year
  Sex: Male
  Weight: 100 kg

DRUGS (4)
  1. LOVENOX [Suspect]
     Active Substance: ENOXAPARIN SODIUM
     Indication: PRODUCT USED FOR UNKNOWN INDICATION
     Dosage: 12000 INTERNATIONAL UNIT, ONCE A DAY
     Route: 058
     Dates: start: 20200412, end: 20200512
  2. TIENAM [Suspect]
     Active Substance: CILASTATIN SODIUM\IMIPENEM
     Indication: INFECTION
     Dosage: 4 GRAM, ONCE A DAY
     Route: 041
     Dates: start: 20200414, end: 20200505
  3. IOMERON [Suspect]
     Active Substance: IOMEPROL
     Indication: SCAN
     Dosage: 4 DOSAGE FORM
     Route: 040
     Dates: start: 20200414, end: 20200511
  4. PANTOPRAZOLE [Suspect]
     Active Substance: PANTOPRAZOLE
     Indication: PRODUCT USED FOR UNKNOWN INDICATION
     Dosage: 20 MILLIGRAM, ONCE A DAY
     Route: 048
     Dates: start: 20200414, end: 20200512

REACTIONS (1)
  - Drug reaction with eosinophilia and systemic symptoms [Not Recovered/Not Resolved]

NARRATIVE: CASE EVENT DATE: 20200504
